FAERS Safety Report 6775072-X (Version None)
Quarter: 2010Q2

REPORT INFORMATION
  Report Type: 
  Country: None (occurrence: None)
  Receive Date: 20100617
  Receipt Date: 20100608
  Transmission Date: 20101027
  Serious: Yes (Other)
  Sender: FDA-Public Use
  Company Number: B0658623A

PATIENT
  Sex: Male
  Weight: 69 kg

DRUGS (3)
  1. AMOXICILLIN [Suspect]
     Indication: RESPIRATORY TRACT INFLAMMATION
     Dosage: 2.25G PER DAY
     Route: 048
     Dates: start: 20100429, end: 20100429
  2. LAMICTAL [Concomitant]
     Route: 065
  3. KEPPRA [Concomitant]
     Route: 065

REACTIONS (1)
  - EPILEPSY [None]
